FAERS Safety Report 22208204 (Version 1)
Quarter: 2023Q2

REPORT INFORMATION
  Report Type: Spontaneous
  Country: AU (occurrence: AU)
  Receive Date: 20230413
  Receipt Date: 20230413
  Transmission Date: 20230722
  Serious: Yes (Other)
  Sender: FDA-Public Use
  Company Number: AU-AMGEN-AUSSP2023061427

PATIENT
  Age: 71 Year
  Sex: Female

DRUGS (1)
  1. REPATHA [Suspect]
     Active Substance: EVOLOCUMAB
     Indication: Blood cholesterol increased
     Dosage: 30 MILLIGRAM, 2X MONTHS
     Route: 065

REACTIONS (16)
  - Blindness [Unknown]
  - Deafness [Unknown]
  - Mobility decreased [Unknown]
  - Pain [Unknown]
  - Asthenia [Unknown]
  - Fluid retention [Unknown]
  - Dry skin [Unknown]
  - Tremor [Unknown]
  - Hiatus hernia [Unknown]
  - Rhinorrhoea [Unknown]
  - Muscle spasms [Unknown]
  - Cough [Unknown]
  - Myalgia [Unknown]
  - Headache [Unknown]
  - Arthralgia [Unknown]
  - Off label use [Unknown]
